FAERS Safety Report 11989079 (Version 2)
Quarter: 2016Q1

REPORT INFORMATION
  Report Type: Spontaneous
  Country: BR (occurrence: BR)
  Receive Date: 20160202
  Receipt Date: 20160309
  Transmission Date: 20160526
  Serious: Yes (Hospitalization)
  Sender: FDA-Public Use
  Company Number: BR-PFIZER INC-2016026941

PATIENT
  Age: 49 Year
  Sex: Female
  Weight: 76 kg

DRUGS (5)
  1. LABIRIN [Concomitant]
     Active Substance: BETAHISTINE
     Indication: INNER EAR DISORDER
     Dosage: 2 TABLET (UNSPECIFIED DOSE), DAILY
     Dates: start: 1998
  2. LYRICA [Suspect]
     Active Substance: PREGABALIN
     Indication: FIBROMYALGIA
     Dosage: 75 MG, 2X/DAY
     Route: 048
     Dates: start: 2010
  3. REUQUINOL [Concomitant]
     Active Substance: HYDROXYCHLOROQUINE SULFATE
     Indication: ANTIPHOSPHOLIPID SYNDROME
     Dosage: 1 TABLET (UNSPECIFIED DOSE), DAILY
     Dates: start: 2010
  4. AAS [Concomitant]
     Active Substance: ASPIRIN
     Indication: COELIAC DISEASE
     Dosage: 1 TABLET (UNSPECIFIED DOSE), DAILY
     Dates: start: 2010
  5. LYRICA [Suspect]
     Active Substance: PREGABALIN
     Indication: PAIN

REACTIONS (2)
  - Crying [Recovered/Resolved]
  - Drug ineffective [Not Recovered/Not Resolved]

NARRATIVE: CASE EVENT DATE: 2010
